FAERS Safety Report 17217705 (Version 1)
Quarter: 2019Q4

REPORT INFORMATION
  Report Type: Other
  Country: CA (occurrence: CA)
  Receive Date: 20191231
  Receipt Date: 20191231
  Transmission Date: 20200122
  Serious: Yes (Life-Threatening, Hospitalization, Other)
  Sender: FDA-Public Use
  Company Number: CA-EMCURE PHARMACEUTICALS LTD-2019-EPL-1231

PATIENT
  Age: 2 Month
  Sex: Male
  Weight: 5 kg

DRUGS (15)
  1. ENALAPRIL [Suspect]
     Active Substance: ENALAPRIL
     Indication: HYPERTENSION
     Dosage: 0.42 MILLIGRAM, 1 IN EVERY 12 HOUR
     Route: 048
  2. ENOXAPARIN [Concomitant]
     Active Substance: ENOXAPARIN
  3. SODIUM BICARBONATE. [Concomitant]
     Active Substance: SODIUM BICARBONATE
  4. CLONIDINE. [Concomitant]
     Active Substance: CLONIDINE
  5. NYSTATINE [Concomitant]
  6. PANTOPRAZOLE [Concomitant]
     Active Substance: PANTOPRAZOLE
  7. HYDRALAZINE [Concomitant]
     Active Substance: HYDRALAZINE HYDROCHLORIDE
  8. MINOXIDIL. [Concomitant]
     Active Substance: MINOXIDIL
  9. EPREX [Concomitant]
     Active Substance: ERYTHROPOIETIN
     Route: 042
  10. AMLODIPIN                          /00972401/ [Concomitant]
     Active Substance: AMLODIPINE BESYLATE
  11. ENALAPRIL [Suspect]
     Active Substance: ENALAPRIL
     Indication: CHRONIC KIDNEY DISEASE
  12. ACETAMINOPHEN. [Concomitant]
     Active Substance: ACETAMINOPHEN
  13. NIFEDIPINE. [Concomitant]
     Active Substance: NIFEDIPINE
  14. LABETALOL HYDROCHLORIDE. [Concomitant]
     Active Substance: LABETALOL HYDROCHLORIDE
     Route: 042
  15. HYDROMORPHONE [Concomitant]
     Active Substance: HYDROMORPHONE

REACTIONS (4)
  - Tracheostomy [Not Recovered/Not Resolved]
  - Off label use [Unknown]
  - Endotracheal intubation [Not Recovered/Not Resolved]
  - Angioedema [Not Recovered/Not Resolved]
